FAERS Safety Report 20657894 (Version 1)
Quarter: 2022Q1

REPORT INFORMATION
  Report Type: Spontaneous
  Country: US (occurrence: None)
  Receive Date: 20220330
  Receipt Date: 20220330
  Transmission Date: 20220423
  Serious: No
  Sender: FDA-Public Use
  Company Number: None

PATIENT
  Age: 63 Year
  Sex: Female
  Weight: 73.94 kg

DRUGS (5)
  1. IBRANCE [Suspect]
     Active Substance: PALBOCICLIB
     Indication: Breast cancer
     Dosage: OTHER FREQUENCY : 21D ON 7DOF;?
     Route: 048
  2. FASLODEX [Concomitant]
     Active Substance: FULVESTRANT
  3. OMEPRAZOLE [Concomitant]
     Active Substance: OMEPRAZOLE
  4. ROSUVASTATIN [Concomitant]
     Active Substance: ROSUVASTATIN
  5. VALTREX [Concomitant]
     Active Substance: VALACYCLOVIR HYDROCHLORIDE

REACTIONS (1)
  - Fatigue [None]
